FAERS Safety Report 19785599 (Version 1)
Quarter: 2021Q3

REPORT INFORMATION
  Report Type: Spontaneous
  Country: US (occurrence: US)
  Receive Date: 20210903
  Receipt Date: 20210903
  Transmission Date: 20211014
  Serious: No
  Sender: FDA-Public Use
  Company Number: US-SA-2021SA289335

PATIENT
  Sex: Female

DRUGS (21)
  1. ALBUTEROL SULFATE. [Concomitant]
     Active Substance: ALBUTEROL SULFATE
  2. AMITRIPTYLINE [Concomitant]
     Active Substance: AMITRIPTYLINE
     Dosage: 100MG
  3. TIZANIDINE. [Concomitant]
     Active Substance: TIZANIDINE
     Dosage: 25MG
  4. TRIAMCINOLONE ACETONIDE. [Concomitant]
     Active Substance: TRIAMCINOLONE ACETONIDE
     Dosage: 14MG
  5. ALLOPURINOL. [Concomitant]
     Active Substance: ALLOPURINOL
     Dosage: 125MG
  6. CARVEDILOL. [Concomitant]
     Active Substance: CARVEDILOL
     Dosage: 100MG
  7. ASPIRINA [Concomitant]
     Active Substance: ASPIRIN
     Dosage: 125MG
  8. ISOSORBIDE MONONITRATE. [Concomitant]
     Active Substance: ISOSORBIDE MONONITRATE
     Dosage: 40MG
  9. PAROXETINE. [Concomitant]
     Active Substance: PAROXETINE
     Dosage: 125MG
  10. GABAPENTIN. [Concomitant]
     Active Substance: GABAPENTIN
     Dosage: 125MG
  11. DULOXETINE. [Concomitant]
     Active Substance: DULOXETINE
     Dosage: 20MG
  12. NICOTINE. [Concomitant]
     Active Substance: NICOTINE
     Dosage: 14 MG, QH
  13. DUPIXENT [Suspect]
     Active Substance: DUPILUMAB
     Dosage: 300 MG, QOW
     Route: 058
  14. TOPIRAMATE. [Concomitant]
     Active Substance: TOPIRAMATE
  15. NIFEDIPINE. [Concomitant]
     Active Substance: NIFEDIPINE
     Dosage: 100MG
  16. BANOPHEN [Concomitant]
     Active Substance: DIPHENHYDRAMINE HYDROCHLORIDE
  17. ATORVASTATIN CALCIUM. [Concomitant]
     Active Substance: ATORVASTATIN CALCIUM
     Dosage: 100MG
  18. DOK [Concomitant]
     Active Substance: DOCUSATE SODIUM
     Dosage: 100MG
  19. FUROSEMIDE. [Concomitant]
     Active Substance: FUROSEMIDE
     Dosage: 20MG
  20. VITAMINAS C [Concomitant]
     Active Substance: ASCORBIC ACID
     Dosage: 10MG
  21. OLOPATADINE. [Concomitant]
     Active Substance: OLOPATADINE

REACTIONS (4)
  - Dry skin [Unknown]
  - Pruritus [Unknown]
  - Sleep disorder [Unknown]
  - Product dose omission issue [Unknown]
